FAERS Safety Report 13681873 (Version 2)
Quarter: 2017Q3

REPORT INFORMATION
  Report Type: Report from Study
  Country: BR (occurrence: BR)
  Receive Date: 20170623
  Receipt Date: 20170920
  Transmission Date: 20171127
  Serious: Yes (Hospitalization)
  Sender: FDA-Public Use
  Company Number: PHHY2017BR092056

PATIENT
  Sex: Female
  Weight: 86 kg

DRUGS (6)
  1. SELOZOK [Concomitant]
     Active Substance: METOPROLOL SUCCINATE
     Indication: HYPERTENSION
     Dosage: 1 DF, QD (5 YEARS AGO)
     Route: 048
  2. MAREVAN [Concomitant]
     Active Substance: WARFARIN SODIUM
     Indication: ANTICOAGULANT THERAPY
     Dosage: 2 DF, QD (1 YEAR AGO)
     Route: 048
  3. VELIJA [Concomitant]
     Active Substance: DULOXETINE HYDROCHLORIDE
     Indication: ANTIDEPRESSANT THERAPY
     Dosage: 1 DF, QD (3 YEARS AGO)
     Route: 048
  4. ASPIRIN. [Concomitant]
     Active Substance: ASPIRIN
     Indication: HYPERTENSION
     Dosage: 1 DF, QD (15 YEARS AGO)
     Route: 048
  5. CRESTOR [Concomitant]
     Active Substance: ROSUVASTATIN CALCIUM
     Indication: BLOOD CHOLESTEROL ABNORMAL
     Dosage: 1 DF, QD (8 YEARS AGO)
     Route: 048
  6. EXFORGE HCT [Suspect]
     Active Substance: AMLODIPINE BESYLATE\HYDROCHLOROTHIAZIDE\VALSARTAN
     Indication: HYPERTENSION
     Dosage: 1 DF (AMLODIPINE 5 MG, HYDROCHLOROTHIAZIDE 12.5MG AND VALSARTAN 160 MG), QD (5 YEARS AGO)
     Route: 048

REACTIONS (1)
  - Thrombosis [Recovered/Resolved]
